FAERS Safety Report 10275522 (Version 1)
Quarter: 2014Q3

REPORT INFORMATION
  Report Type: Spontaneous
  Country: RO (occurrence: RO)
  Receive Date: 20140703
  Receipt Date: 20140703
  Transmission Date: 20150326
  Serious: Yes (Death, Other)
  Sender: FDA-Public Use
  Company Number: PHHY2014RO078742

PATIENT
  Age: 56 Year
  Sex: Female

DRUGS (2)
  1. THIAMAZOLE [Suspect]
     Active Substance: METHIMAZOLE
     Indication: HYPERTHYROIDISM
     Dosage: 40 MG, UNK
     Route: 048
  2. THIAMAZOLE [Suspect]
     Active Substance: METHIMAZOLE
     Dosage: 20 MG, UNK
     Route: 048

REACTIONS (11)
  - Osteolysis [Unknown]
  - Hyperthyroidism [Unknown]
  - Bone pain [Unknown]
  - Fatigue [Unknown]
  - Agranulocytosis [Recovered/Resolved]
  - Death [Fatal]
  - Monoclonal gammopathy [Unknown]
  - Leukopenia [Recovered/Resolved]
  - Plasma cell myeloma [Unknown]
  - Dyspnoea [Unknown]
  - Anaemia [Unknown]
